FAERS Safety Report 8181363-0 (Version None)
Quarter: 2012Q1

REPORT INFORMATION
  Report Type: 
  Country: None (occurrence: None)
  Receive Date: 20120302
  Receipt Date: 20120228
  Transmission Date: 20120608
  Serious: Yes (Other)
  Sender: FDA-Public Use
  Company Number: US-PFIZER INC-2012012805

PATIENT
  Sex: Female
  Weight: 63.492 kg

DRUGS (3)
  1. DETROL LA [Suspect]
     Dosage: 4 MG, 1X/DAY
     Route: 048
     Dates: start: 20100101
  2. DETROL LA [Suspect]
     Indication: POLLAKIURIA
     Dosage: 2 MG, 1X/DAY
     Route: 048
     Dates: start: 20080101, end: 20100101
  3. DETROL LA [Suspect]

REACTIONS (2)
  - URINARY RETENTION [None]
  - DYSURIA [None]
